FAERS Safety Report 4486180-0 (Version None)
Quarter: 2004Q4

REPORT INFORMATION
  Report Type: 
  Country: None (occurrence: None)
  Receive Date: 20041026
  Receipt Date: 20041021
  Transmission Date: 20050328
  Serious: Yes (Hospitalization, Disabling)
  Sender: FDA-Public Use
  Company Number: US-MERCK-0410USA03258

PATIENT
  Age: 51 Year
  Sex: Female

DRUGS (3)
  1. VIOXX [Suspect]
     Indication: PAIN IN EXTREMITY
     Route: 048
     Dates: start: 20030101, end: 20040907
  2. SYNTHROID [Concomitant]
     Route: 065
  3. ULTRACET [Concomitant]
     Route: 065

REACTIONS (1)
  - CHEST PAIN [None]
